FAERS Safety Report 4977516-2 (Version None)
Quarter: 2006Q2

REPORT INFORMATION
  Report Type: 
  Country: None (occurrence: None)
  Receive Date: 20060420
  Receipt Date: 20051216
  Transmission Date: 20061013
  Serious: Yes (Life-Threatening)
  Sender: FDA-Public Use
  Company Number: PHHO2005AT19659

PATIENT
  Sex: Female

DRUGS (10)
  1. TRITTICO [Concomitant]
  2. GLADEM [Concomitant]
  3. LAMICTAL [Concomitant]
  4. VOLTAREN [Suspect]
     Dosage: 100 MG, BID
     Dates: start: 20050916, end: 20050918
  5. VOLTAREN [Suspect]
     Dosage: UNK, NO TREATMENT
  6. VOLTAREN [Suspect]
     Dosage: 100 MG, BID
     Dates: start: 20050922, end: 20050925
  7. VOLTAREN [Suspect]
     Dosage: 100 MG, QD
     Route: 048
     Dates: start: 20050926
  8. VOLTAREN [Suspect]
     Dosage: 50 MG, QD
     Dates: start: 20050927
  9. NEODOLPASSE [Concomitant]
  10. ZELDOX [Concomitant]

REACTIONS (9)
  - ANXIETY [None]
  - CONDITION AGGRAVATED [None]
  - DEPRESSION [None]
  - HALLUCINATION, AUDITORY [None]
  - PSYCHOTIC DISORDER [None]
  - REFUSAL OF TREATMENT BY PATIENT [None]
  - SCHIZOAFFECTIVE DISORDER [None]
  - SUICIDE ATTEMPT [None]
  - THERAPY NON-RESPONDER [None]
